FAERS Safety Report 25904462 (Version 1)
Quarter: 2025Q4

REPORT INFORMATION
  Report Type: Spontaneous
  Country: EU (occurrence: EU)
  Receive Date: 20251010
  Receipt Date: 20251010
  Transmission Date: 20260118
  Serious: Yes (Other)
  Sender: AUROBINDO
  Company Number: EU-EMA-20150107-tanvievhp-142808088

PATIENT
  Age: 66 Year
  Sex: Male

DRUGS (6)
  1. PREDNISOLONE [Suspect]
     Active Substance: PREDNISOLONE
     Indication: Immunosuppression
     Dosage: 5 MILLIGRAM, ONCE A DAY
     Route: 065
     Dates: start: 2009
  2. PREDNISOLONE [Suspect]
     Active Substance: PREDNISOLONE
     Indication: Renal transplant
  3. MYCOPHENOLATE MOFETIL [Suspect]
     Active Substance: MYCOPHENOLATE MOFETIL
     Indication: Immunosuppression
     Dosage: 2 GRAM, ONCE A DAY
     Route: 065
     Dates: start: 2009
  4. MYCOPHENOLATE MOFETIL [Suspect]
     Active Substance: MYCOPHENOLATE MOFETIL
     Indication: Renal transplant
     Dosage: 750 MILLIGRAM, ONCE A DAY
     Route: 065
  5. TACROLIMUS [Suspect]
     Active Substance: TACROLIMUS
     Indication: Immunosuppression
     Dosage: 12 MILLIGRAM, ONCE A DAY
     Route: 065
     Dates: start: 2009
  6. TACROLIMUS [Suspect]
     Active Substance: TACROLIMUS
     Indication: Renal transplant
     Dosage: 9.5 MILLIGRAM, ONCE A DAY
     Route: 065

REACTIONS (8)
  - Phaeohyphomycosis [Recovered/Resolved]
  - Systemic mycosis [Recovered/Resolved]
  - Dermatitis [Recovered/Resolved]
  - Hyperkeratosis [Recovered/Resolved]
  - Fungal skin infection [Recovered/Resolved]
  - Skin mass [Recovered/Resolved]
  - Skin papilloma [Recovered/Resolved]
  - Cutaneous T-cell lymphoma [Recovered/Resolved]

NARRATIVE: CASE EVENT DATE: 20100801
